FAERS Safety Report 18399606 (Version 1)
Quarter: 2020Q4

REPORT INFORMATION
  Report Type: Spontaneous
  Country: FR (occurrence: FR)
  Receive Date: 20201019
  Receipt Date: 20201019
  Transmission Date: 20210114
  Serious: Yes (Other)
  Sender: FDA-Public Use
  Company Number: FR-MYLANLABS-2020M1087229

PATIENT
  Age: 33 Year
  Sex: Male
  Weight: 88 kg

DRUGS (2)
  1. RAMIPRIL MYLAN 2,5 MG, COMPRIM? S?CABLE [Suspect]
     Active Substance: RAMIPRIL
     Indication: NEPHROPROTECTIVE THERAPY
     Dosage: 5 MILLIGRAM, QD
     Route: 048
     Dates: start: 20200808, end: 20200813
  2. VORICONAZOLE ARROW [Suspect]
     Active Substance: VORICONAZOLE
     Indication: ASPERGILLUS INFECTION
     Dosage: 400 MILLIGRAM
     Route: 042
     Dates: start: 20200811, end: 20200812

REACTIONS (2)
  - Off label use [Unknown]
  - Angioedema [Recovered/Resolved]

NARRATIVE: CASE EVENT DATE: 202008
